FAERS Safety Report 22320386 (Version 2)
Quarter: 2023Q2

REPORT INFORMATION
  Report Type: Spontaneous
  Country: NL (occurrence: NL)
  Receive Date: 20230515
  Receipt Date: 20230526
  Transmission Date: 20230722
  Serious: Yes (Hospitalization)
  Sender: FDA-Public Use
  Company Number: NL-TEVA-2023-NL-2886667

PATIENT
  Age: 72 Year
  Sex: Male

DRUGS (3)
  1. ZOLPIDEM [Suspect]
     Active Substance: ZOLPIDEM TARTRATE
     Indication: Sleep disorder
     Dosage: BEFORE BED TIME
     Route: 065
  2. APIDRA [Suspect]
     Active Substance: INSULIN GLULISINE
     Indication: Accidental exposure to product
     Route: 065
  3. LANTUS [Suspect]
     Active Substance: INSULIN GLARGINE
     Indication: Accidental exposure to product
     Route: 065

REACTIONS (4)
  - Sedation [Unknown]
  - Confusional state [Unknown]
  - Hypoglycaemia [Recovering/Resolving]
  - Accidental exposure to product [Unknown]
